FAERS Safety Report 6961765-8 (Version None)
Quarter: 2010Q3

REPORT INFORMATION
  Report Type: 
  Country: None (occurrence: None)
  Receive Date: 20100901
  Receipt Date: 20100826
  Transmission Date: 20110219
  Serious: Yes (Death)
  Sender: FDA-Public Use
  Company Number: NL-ROCHE-724141

PATIENT

DRUGS (3)
  1. CAPECITABINE [Suspect]
     Indication: GASTRIC CANCER
     Dosage: LAST DOSE:28 AUGUST 2008
     Route: 065
     Dates: start: 20080717
  2. CISPLATIN [Suspect]
     Indication: GASTRIC CANCER
     Dosage: LAST DOSE:28 AUGUST 2008
     Route: 065
     Dates: start: 20080717
  3. EPIRUBICIN [Suspect]
     Indication: GASTRIC CANCER
     Dosage: LAST DOSE:28 AUGUST 2008
     Route: 065
     Dates: start: 20080717

REACTIONS (1)
  - PULMONARY HAEMORRHAGE [None]
